FAERS Safety Report 6193720-2 (Version None)
Quarter: 2009Q2

REPORT INFORMATION
  Report Type: 
  Country: None (occurrence: None)
  Receive Date: 20090518
  Receipt Date: 20090506
  Transmission Date: 20091009
  Serious: Yes (Other)
  Sender: FDA-Public Use
  Company Number: FR-WYE-G02353408

PATIENT
  Sex: Male
  Weight: 92 kg

DRUGS (9)
  1. TORISEL [Suspect]
     Indication: METASTATIC RENAL CELL CARCINOMA
     Route: 042
     Dates: start: 20080829, end: 20080905
  2. POLARAMINE [Concomitant]
     Indication: PREMEDICATION
     Dosage: 5 MG, 30 MINUTES BEFORE THE INFUSION OF TORISEL
     Route: 042
     Dates: start: 20080905, end: 20080905
  3. PERINDOPRIL ERBUMINE [Suspect]
     Indication: HYPERTENSION
     Route: 048
     Dates: start: 20080827, end: 20081008
  4. AVASTIN [Concomitant]
     Indication: METASTATIC RENAL CELL CARCINOMA
     Route: 042
     Dates: start: 20080829
  5. TENORMIN [Concomitant]
     Route: 048
  6. PLAVIX [Concomitant]
     Indication: HYPERTENSION
     Route: 048
     Dates: start: 20080801
  7. ELISOR [Concomitant]
     Dosage: UNKNOWN
     Route: 048
     Dates: start: 20080829
  8. AZANTAC [Concomitant]
     Indication: PREMEDICATION
     Dosage: 50 MG, 30 MINUTES BEFORE THE INFUSION OF TORISEL
     Route: 042
     Dates: start: 20080905, end: 20080905
  9. IPERTEN [Concomitant]
     Indication: HYPERTENSION
     Route: 048
     Dates: start: 20080801

REACTIONS (4)
  - ANGIOEDEMA [None]
  - CONDITION AGGRAVATED [None]
  - DYSPNOEA [None]
  - HYPERTENSION [None]
